FAERS Safety Report 13170631 (Version 3)
Quarter: 2019Q1

REPORT INFORMATION
  Report Type: Spontaneous
  Country: US (occurrence: US)
  Receive Date: 20170131
  Receipt Date: 20190204
  Transmission Date: 20190417
  Serious: Yes (Other)
  Sender: FDA-Public Use
  Company Number: US-ABBVIE-16K-163-1707599-00

PATIENT
  Sex: Female

DRUGS (1)
  1. HUMIRA [Suspect]
     Active Substance: ADALIMUMAB
     Indication: HIDRADENITIS
     Route: 058

REACTIONS (12)
  - Depression [Unknown]
  - Fatigue [Unknown]
  - Stress [Unknown]
  - Pain [Unknown]
  - Mass [Unknown]
  - Anxiety [Unknown]
  - Multiple sclerosis [Unknown]
  - Joint range of motion decreased [Unknown]
  - Nasopharyngitis [Recovered/Resolved]
  - Hidradenitis [Unknown]
  - Drug ineffective [Unknown]
  - Nasopharyngitis [Unknown]

NARRATIVE: CASE EVENT DATE: 2015
